FAERS Safety Report 16229744 (Version 1)
Quarter: 2019Q2

REPORT INFORMATION
  Report Type: Spontaneous
  Country: AU (occurrence: AU)
  Receive Date: 20190423
  Receipt Date: 20190423
  Transmission Date: 20190711
  Serious: Yes (Hospitalization, Other)
  Sender: FDA-Public Use
  Company Number: AU-BAUSCH-BL-2019-011904

PATIENT
  Age: 6 Decade
  Sex: Female

DRUGS (1)
  1. EFUDIX CREAM 5% [Suspect]
     Active Substance: FLUOROURACIL
     Indication: SKIN CANCER
     Dosage: DURING THE MORNING
     Route: 061
     Dates: start: 20190415, end: 20190415

REACTIONS (4)
  - Cardiac arrest [Recovering/Resolving]
  - Fall [Recovering/Resolving]
  - Anaphylactic reaction [Recovering/Resolving]
  - Bronchospasm [Recovering/Resolving]

NARRATIVE: CASE EVENT DATE: 20190415
